FAERS Safety Report 7709910-0 (Version None)
Quarter: 2011Q3

REPORT INFORMATION
  Report Type: 
  Country: None (occurrence: None)
  Receive Date: 20110825
  Receipt Date: 20110822
  Transmission Date: 20111222
  Serious: Yes (Other)
  Sender: FDA-Public Use
  Company Number: US-PFIZER INC-2011194379

PATIENT
  Sex: Male
  Weight: 65.76 kg

DRUGS (2)
  1. HYDROCODONE [Concomitant]
     Dosage: UNK
  2. TOVIAZ [Suspect]
     Indication: POLLAKIURIA
     Dosage: 4 MG, 1X/DAY
     Route: 048
     Dates: start: 20110819, end: 20110820

REACTIONS (5)
  - DYSPNOEA [None]
  - RASH [None]
  - MICTURITION URGENCY [None]
  - POLLAKIURIA [None]
  - DYSURIA [None]
